FAERS Safety Report 6981818-8 (Version None)
Quarter: 2010Q3

REPORT INFORMATION
  Report Type: 
  Country: None (occurrence: None)
  Receive Date: 20100914
  Receipt Date: 20091202
  Transmission Date: 20110219
  Serious: Yes (Other)
  Sender: FDA-Public Use
  Company Number: US-PFIZER INC-2009263101

PATIENT
  Sex: Female

DRUGS (14)
  1. LYRICA [Suspect]
     Indication: FIBROMYALGIA
     Dosage: 25 MG, UNK
     Dates: start: 20070101
  2. LYRICA [Suspect]
     Dosage: 25 MG,  1 TO 4 CAPSULES 3 TO 4 TIMES A DAY
     Dates: start: 20070101
  3. FENTANYL CITRATE [Concomitant]
     Indication: PAIN
     Dosage: 37 UG, UNK
     Route: 061
  4. HYDROCODONE [Concomitant]
     Indication: BREAKTHROUGH PAIN
     Dosage: UNK
  5. PROZAC [Concomitant]
     Indication: DEPRESSION
     Dosage: UNK
  6. WELLBUTRIN XL [Concomitant]
     Indication: DEPRESSION
     Dosage: UNIT DOSE: 150;
  7. ADDERALL XR 10 [Concomitant]
     Indication: ATTENTION DEFICIT/HYPERACTIVITY DISORDER
     Dosage: UNK
  8. XANAX [Concomitant]
     Indication: SLEEP DISORDER
     Dosage: UNK
  9. VALTREX [Concomitant]
     Dosage: UNK
  10. GUAIFENESIN [Concomitant]
     Indication: NASAL CONGESTION
     Dosage: UNK
  11. ASTELIN [Concomitant]
     Indication: NASAL CONGESTION
     Dosage: UNK
  12. NASONEX [Concomitant]
     Indication: NASAL CONGESTION
     Dosage: UNK
  13. SINGULAIR [Concomitant]
     Dosage: UNK
  14. MELOXICAM [Concomitant]

REACTIONS (4)
  - DRUG DEPENDENCE [None]
  - DRUG WITHDRAWAL SYNDROME [None]
  - SWELLING [None]
  - WEIGHT INCREASED [None]
